FAERS Safety Report 5750477-4 (Version None)
Quarter: 2008Q2

REPORT INFORMATION
  Report Type: 
  Country: None (occurrence: None)
  Receive Date: 20080528
  Receipt Date: 20071128
  Transmission Date: 20081010
  Serious: No
  Sender: FDA-Public Use
  Company Number: US-KINGPHARMUSA00001-K200701539

PATIENT

DRUGS (9)
  1. AVINZA [Suspect]
     Indication: ARTHRALGIA
     Dosage: 60 MG, QD
     Route: 048
  2. DETROL /01350201/ [Concomitant]
  3. FLUOXETINE HCL [Concomitant]
  4. ETODOLAC [Concomitant]
  5. PROTONIX /01263201/ [Concomitant]
  6. SKELAXIN [Concomitant]
  7. LASIX [Concomitant]
  8. TRAZODONE HCL [Concomitant]
  9. SYNTHROID [Concomitant]

REACTIONS (4)
  - DRUG INEFFECTIVE [None]
  - HYPERHIDROSIS [None]
  - NERVOUSNESS [None]
  - WITHDRAWAL SYNDROME [None]
